FAERS Safety Report 4963305-1 (Version None)
Quarter: 2006Q2

REPORT INFORMATION
  Report Type: 
  Country: None (occurrence: None)
  Receive Date: 20060404
  Receipt Date: 20060404
  Transmission Date: 20061013
  Serious: Yes (Hospitalization)
  Sender: FDA-Public Use
  Company Number: None

PATIENT
  Age: 37 Year
  Sex: Male
  Weight: 113.3993 kg

DRUGS (1)
  1. ZOSYN [Suspect]
     Indication: CELLULITIS
     Dosage: 4.5 GM Q8 H
     Dates: start: 20060323

REACTIONS (1)
  - PAIN IN EXTREMITY [None]
